FAERS Safety Report 6826911-5 (Version None)
Quarter: 2010Q3

REPORT INFORMATION
  Report Type: 
  Country: None (occurrence: None)
  Receive Date: 20100709
  Receipt Date: 20100701
  Transmission Date: 20110219
  Serious: Yes (Hospitalization)
  Sender: FDA-Public Use
  Company Number: FR-JNJFOC-20100700180

PATIENT
  Age: 83 Year
  Sex: Male

DRUGS (3)
  1. TAVANIC [Suspect]
     Indication: BRONCHITIS
     Route: 048
  2. PHENYLPROPANOLAMINE [Suspect]
     Indication: BRONCHITIS
     Dosage: 1 UNIT DAILY
     Route: 048
  3. HELICIDINE [Suspect]
     Indication: BRONCHITIS
     Dosage: 1 UNIT DAILY
     Route: 048

REACTIONS (3)
  - DERMATITIS BULLOUS [None]
  - ERYTHEMA [None]
  - FIXED ERUPTION [None]
